FAERS Safety Report 5129896-5 (Version None)
Quarter: 2006Q4

REPORT INFORMATION
  Report Type: 
  Country: None (occurrence: None)
  Receive Date: 20061012
  Receipt Date: 20061003
  Transmission Date: 20070319
  Serious: Yes (Life-Threatening, Hospitalization, Disabling)
  Sender: FDA-Public Use
  Company Number: 06H-167-0309800-00

PATIENT
  Age: 64 Year
  Sex: Male

DRUGS (4)
  1. ATRACURIUM BESYLATE [Suspect]
     Indication: GENERAL ANAESTHESIA
     Dosage: 30 MG, INTRAVENOUS
     Route: 042
     Dates: start: 20060616, end: 20060616
  2. PROPOFOL [Suspect]
     Indication: GENERAL ANAESTHESIA
     Dosage: 300 MG, INTRAVENOUS
     Route: 042
     Dates: start: 20060616, end: 20060616
  3. ALLOPURINOL [Concomitant]
  4. BISOPROLOL FUMARATE [Concomitant]

REACTIONS (1)
  - SUPRAVENTRICULAR TACHYCARDIA [None]
